FAERS Safety Report 9713376 (Version 1)
Quarter: 2013Q4

REPORT INFORMATION
  Report Type: Spontaneous
  Country: AU (occurrence: AU)
  Receive Date: 20131126
  Receipt Date: 20131126
  Transmission Date: 20140711
  Serious: Yes (Life-Threatening, Hospitalization)
  Sender: FDA-Public Use
  Company Number: AU-MYLANLABS-2013S1025964

PATIENT
  Age: 39 Year
  Sex: Male

DRUGS (1)
  1. PENTOXIFYLLINE [Suspect]
     Indication: HEPATITIS ALCOHOLIC
     Route: 065

REACTIONS (1)
  - Drug reaction with eosinophilia and systemic symptoms [Recovering/Resolving]
